FAERS Safety Report 9880660 (Version 2)
Quarter: 2014Q1

REPORT INFORMATION
  Report Type: Report from Study
  Country: CA (occurrence: CA)
  Receive Date: 20140207
  Receipt Date: 20140220
  Transmission Date: 20141002
  Serious: Yes (Life-Threatening, Hospitalization)
  Sender: FDA-Public Use
  Company Number: CA-ROCHE-1345748

PATIENT
  Age: 77 Year
  Sex: Female

DRUGS (10)
  1. RITUXAN [Suspect]
     Indication: RHEUMATOID ARTHRITIS
     Dosage: FREQUENCY: DAY 1 AND 15
     Route: 042
     Dates: start: 20130715
  2. ACETAMINOPHEN [Concomitant]
     Indication: PREMEDICATION
     Route: 048
     Dates: start: 20130729
  3. DIPHENHYDRAMINE HCL [Concomitant]
     Indication: PREMEDICATION
     Route: 048
     Dates: start: 20130729
  4. METHYLPREDNISOLONE [Concomitant]
     Indication: PREMEDICATION
     Route: 042
     Dates: start: 20130729
  5. SYNTHROID [Concomitant]
  6. METHOTREXATE [Concomitant]
     Route: 065
  7. ACTONEL [Concomitant]
  8. PANTOLOC [Concomitant]
  9. RAMIPRIL [Concomitant]
  10. LEUCOVORIN [Concomitant]

REACTIONS (2)
  - Fall [Unknown]
  - Subdural haematoma [Recovering/Resolving]
